FAERS Safety Report 21121745 (Version 1)
Quarter: 2022Q3

REPORT INFORMATION
  Report Type: Spontaneous
  Country: CA (occurrence: CA)
  Receive Date: 20220722
  Receipt Date: 20220722
  Transmission Date: 20221026
  Serious: Yes (Other)
  Sender: FDA-Public Use
  Company Number: CA-PFIZER INC-202200991344

PATIENT
  Age: 26 Year
  Sex: Female
  Weight: 45 kg

DRUGS (3)
  1. XELJANZ [Suspect]
     Active Substance: TOFACITINIB CITRATE
     Route: 065
  2. HUMIRA [Suspect]
     Active Substance: ADALIMUMAB
     Dosage: UNK
     Route: 058
  3. MESALAMINE [Suspect]
     Active Substance: MESALAMINE
     Route: 065

REACTIONS (13)
  - Colitis ulcerative [Unknown]
  - Haematochezia [Unknown]
  - Rectal haemorrhage [Unknown]
  - Therapeutic response decreased [Unknown]
  - Abdominal discomfort [Unknown]
  - Abdominal pain [Unknown]
  - Condition aggravated [Unknown]
  - Dry mouth [Unknown]
  - Faecal calprotectin increased [Unknown]
  - Flatulence [Unknown]
  - Impaired quality of life [Unknown]
  - Impaired work ability [Unknown]
  - Laboratory test abnormal [Unknown]
